FAERS Safety Report 9106989 (Version 2)
Quarter: 2013Q2

REPORT INFORMATION
  Report Type: Spontaneous
  Country: GB (occurrence: GB)
  Receive Date: 20130221
  Receipt Date: 20130419
  Transmission Date: 20140414
  Serious: Yes (Death, Other)
  Sender: FDA-Public Use
  Company Number: GB-CELGENEUS-167-21880-13022193

PATIENT
  Age: 51 Year
  Sex: Male
  Weight: 124 kg

DRUGS (7)
  1. REVLIMID [Suspect]
     Indication: RICHTER^S SYNDROME
     Route: 048
     Dates: start: 20110804, end: 201108
  2. ANTIBIOTICS [Concomitant]
     Indication: CELLULITIS
     Route: 041
     Dates: start: 201107
  3. RITUXIMAB [Concomitant]
     Indication: RICHTER^S SYNDROME
     Route: 065
  4. DEXAMETHASONE [Concomitant]
     Indication: RICHTER^S SYNDROME
     Route: 065
  5. CYTARABINE [Concomitant]
     Indication: RICHTER^S SYNDROME
     Route: 065
  6. CISPLATIN [Concomitant]
     Indication: RICHTER^S SYNDROME
     Route: 065
  7. STEROIDS [Concomitant]
     Indication: PRODUCT USED FOR UNKNOWN INDICATION
     Route: 065
     Dates: start: 201107

REACTIONS (1)
  - Richter^s syndrome [Fatal]
